FAERS Safety Report 7386740-3 (Version None)
Quarter: 2011Q1

REPORT INFORMATION
  Report Type: 
  Country: None (occurrence: None)
  Receive Date: 20110331
  Receipt Date: 20110329
  Transmission Date: 20110831
  Serious: Yes (Other)
  Sender: FDA-Public Use
  Company Number: US-PFIZER INC-2011069741

PATIENT
  Sex: Female

DRUGS (4)
  1. ARTHROTEC [Suspect]
     Dosage: 50MG/200MCG UNK
  2. TERBINAFINE [Concomitant]
     Indication: FUNGAL INFECTION
     Dosage: UNK
  3. BEXTRA [Concomitant]
     Dosage: UNK
  4. ARTHROTEC [Suspect]
     Dosage: 75MG/200MCG

REACTIONS (3)
  - KNEE ARTHROPLASTY [None]
  - WEIGHT INCREASED [None]
  - ABDOMINAL PAIN UPPER [None]
